FAERS Safety Report 9687700 (Version 1)
Quarter: 2013Q4

REPORT INFORMATION
  Report Type: Spontaneous
  Country: GB (occurrence: None)
  Receive Date: 20131112
  Receipt Date: 20131112
  Transmission Date: 20140711
  Serious: Yes (Other)
  Sender: FDA-Public Use
  Company Number: KAD201310-001489

PATIENT
  Age: 32 Year
  Sex: Male
  Weight: 103.9 kg

DRUGS (15)
  1. RIBAVIRIN (RIBAVIRIN) [Suspect]
     Indication: CHRONIC HEPATITIS C
     Route: 048
     Dates: start: 20130827
  2. VIRAFERON [Suspect]
     Indication: CHRONIC HEPATITIS C
     Route: 058
     Dates: start: 20130827
  3. ZAPONEX (CLOZAPINE) [Suspect]
     Indication: SCHIZOAFFECTIVE DISORDER
     Dosage: 175 MG MANE AND 325 MG NOCTE, 500 MG DAILY
     Route: 048
     Dates: start: 20080819, end: 20121001
  4. PEGYLATED INTERFERON (PEGYLATED INTERFERON) [Concomitant]
  5. AMISULPRIDE (AMISULPRIDE) [Concomitant]
  6. BENZHEXOL (BENZHEXOL) [Concomitant]
  7. CHOLECALCIFEROL (VITAMIN D, VITAMIN D SUBSTANCES) [Concomitant]
  8. FENOFIBRATE (FENOFIBRATE) (FENOFIBRATE) [Concomitant]
  9. GLICLAZIDE (GLICLAZIDE) [Concomitant]
  10. LANSOPRAZOLE [Concomitant]
  11. LITHIUM CARBONATE (LITHIUM) [Concomitant]
  12. METFORMIN (METFORMIN) [Concomitant]
  13. OLANZAPINE (OLANZAPINE) [Concomitant]
  14. TELAPREVIR (TELAPREVIR) [Concomitant]
  15. VENLAFAXINE (VENLAFAXINE) [Concomitant]

REACTIONS (5)
  - Leukopenia [None]
  - Neutropenia [None]
  - Off label use [None]
  - Platelet count decreased [None]
  - Blood disorder [None]
